FAERS Safety Report 17604905 (Version 1)
Quarter: 2020Q1

REPORT INFORMATION
  Report Type: Spontaneous
  Country: AU (occurrence: AU)
  Receive Date: 20200331
  Receipt Date: 20200331
  Transmission Date: 20200409
  Serious: Yes (Other)
  Sender: FDA-Public Use
  Company Number: AU-ROCHE-2573537

PATIENT
  Sex: Female

DRUGS (2)
  1. XOLAIR [Suspect]
     Active Substance: OMALIZUMAB
     Indication: CHRONIC SPONTANEOUS URTICARIA
     Dosage: 300 MG, QMO
     Route: 065
  2. CICLOSPORIN [Concomitant]
     Active Substance: CYCLOSPORINE
     Indication: PRODUCT USED FOR UNKNOWN INDICATION
     Dosage: 100 MG
     Route: 065

REACTIONS (7)
  - Anaphylactic reaction [Unknown]
  - Mood altered [Unknown]
  - Angioedema [Unknown]
  - Urticaria [Unknown]
  - Therapy partial responder [Unknown]
  - Pruritus [Unknown]
  - Self-injurious ideation [Unknown]
